FAERS Safety Report 8189285-6 (Version None)
Quarter: 2012Q1

REPORT INFORMATION
  Report Type: 
  Country: None (occurrence: None)
  Receive Date: 20120302
  Receipt Date: 20120221
  Transmission Date: 20120608
  Serious: Yes (Hospitalization)
  Sender: FDA-Public Use
  Company Number: 1204414

PATIENT
  Age: 3 Year
  Sex: Male

DRUGS (1)
  1. CYTARABINE [Suspect]
     Indication: MYELODYSPLASTIC SYNDROME
     Dosage: NOT REPORTED, UNKNOWN, UNKNOWN

REACTIONS (5)
  - NEUTROPENIA [None]
  - NAUSEA [None]
  - THROMBOCYTOPENIA [None]
  - ABDOMINAL PAIN [None]
  - CAECITIS [None]
